FAERS Safety Report 5807237-5 (Version None)
Quarter: 2008Q3

REPORT INFORMATION
  Report Type: 
  Country: None (occurrence: None)
  Receive Date: 20080711
  Receipt Date: 20080702
  Transmission Date: 20090109
  Serious: Yes (Other)
  Sender: FDA-Public Use
  Company Number: CA-JNJFOC-20080401741

PATIENT
  Sex: Female
  Weight: 57.4 kg

DRUGS (4)
  1. REMICADE [Suspect]
     Indication: RHEUMATOID ARTHRITIS
     Dosage: 10 DOSES TO DATE
     Route: 042
  2. METHOTREXATE [Concomitant]
  3. NADOLOL [Concomitant]
  4. PREDNISONE TAB [Concomitant]

REACTIONS (1)
  - EPISTAXIS [None]
